FAERS Safety Report 24529404 (Version 1)
Quarter: 2024Q4

REPORT INFORMATION
  Report Type: Spontaneous
  Country: FR (occurrence: FR)
  Receive Date: 20241021
  Receipt Date: 20241021
  Transmission Date: 20250115
  Serious: Yes (Death, Other)
  Sender: B BRAUN
  Company Number: FR-B.Braun Medical Inc.-2163446

PATIENT
  Age: 12 Month
  Sex: Male
  Weight: 11.5 kg

DRUGS (6)
  1. ACETAMINOPHEN [Suspect]
     Active Substance: ACETAMINOPHEN
     Indication: Anaesthesia
     Dates: start: 20240415
  2. PROPOFOL [Suspect]
     Active Substance: PROPOFOL
  3. LIDOCAINE [Suspect]
     Active Substance: LIDOCAINE
  4. OFLOXACIN [Suspect]
     Active Substance: OFLOXACIN
  5. KETAMINE [Suspect]
     Active Substance: KETAMINE
  6. DEXAMETHASONE ACETATE [Suspect]
     Active Substance: DEXAMETHASONE ACETATE

REACTIONS (1)
  - Sudden infant death syndrome [Fatal]
